FAERS Safety Report 8817285 (Version 1)
Quarter: 2012Q4

REPORT INFORMATION
  Report Type: 
  Country: PL (occurrence: PL)
  Receive Date: 20121001
  Receipt Date: 20121001
  Transmission Date: 20130627
  Serious: Yes (Hospitalization)
  Sender: FDA-Public Use
  Company Number: PL-SANOFI-AVENTIS-2012SA069957

PATIENT
  Age: 46 Year
  Sex: Female
  Weight: 52 kg

DRUGS (1)
  1. INSULIN GLULISINE [Suspect]
     Indication: DRUG POISONING
     Route: 065

REACTIONS (3)
  - Coma [Recovered/Resolved]
  - Respiratory failure [Recovered/Resolved]
  - Hypoglycaemia [Recovered/Resolved]
